FAERS Safety Report 17864438 (Version 1)
Quarter: 2020Q2

REPORT INFORMATION
  Report Type: Spontaneous
  Country: US (occurrence: US)
  Receive Date: 20200604
  Receipt Date: 20200604
  Transmission Date: 20200714
  Serious: Yes (Hospitalization)
  Sender: FDA-Public Use
  Company Number: None

PATIENT
  Age: 74 Year
  Sex: Male

DRUGS (1)
  1. APIXABAN (APIXABAN 5MG TAB) [Suspect]
     Active Substance: APIXABAN
     Indication: ATRIAL FIBRILLATION
     Route: 048
     Dates: start: 20200125

REACTIONS (6)
  - Hypotension [None]
  - Fatigue [None]
  - Melaena [None]
  - Gastrointestinal haemorrhage [None]
  - Arteriovenous malformation [None]
  - Dizziness [None]

NARRATIVE: CASE EVENT DATE: 20200510
